FAERS Safety Report 7887086-7 (Version None)
Quarter: 2011Q4

REPORT INFORMATION
  Report Type: 
  Country: None (occurrence: None)
  Receive Date: 20111102
  Receipt Date: 20110714
  Transmission Date: 20120403
  Serious: No
  Sender: FDA-Public Use
  Company Number: US-AMGEN-USASP2011035896

PATIENT
  Age: 57 Year
  Sex: Female
  Weight: 120.18 kg

DRUGS (13)
  1. PREDNISONE [Concomitant]
     Dosage: 5 MG, UNK
     Route: 048
  2. METHOTREXATE [Concomitant]
     Dosage: 2.5 MG, UNK
     Route: 048
  3. HYDROXYCHLOROQUINE SULFATE [Concomitant]
     Dosage: 200 MG, UNK
     Route: 048
  4. ENBREL [Suspect]
     Indication: PRODUCT USED FOR UNKNOWN INDICATION
     Dosage: 50 MG, QWK
     Route: 058
  5. METOPROLOL TARTRATE [Concomitant]
     Dosage: 100 MG, UNK
     Route: 048
  6. FOLIC ACID [Concomitant]
     Dosage: 1 MG, UNK
     Route: 048
  7. MELOXICAM [Concomitant]
     Dosage: 15 MG, UNK
     Route: 048
  8. TRAMADOL HCL [Concomitant]
     Dosage: 50 MG, UNK
     Route: 048
  9. ATENOLOL [Concomitant]
     Dosage: 50 MG, UNK
     Route: 048
  10. MOMETASONE FUROATE [Concomitant]
     Dosage: 0.1 %, UNK
     Route: 061
  11. HYDROCODONE BITARTRATE AND ACETAMINOPHEN [Concomitant]
     Dosage: 500 MG, UNK
     Route: 048
  12. OMEPRAZOLE [Concomitant]
     Dosage: 20 MG, UNK
     Route: 048
  13. CALCIUM W/VITAMIN D                /00188401/ [Concomitant]
     Dosage: UNK

REACTIONS (1)
  - VISION BLURRED [None]
